FAERS Safety Report 11194522 (Version 2)
Quarter: 2015Q2

REPORT INFORMATION
  Report Type: Spontaneous
  Country: AR (occurrence: AR)
  Receive Date: 20150616
  Receipt Date: 20150619
  Transmission Date: 20150821
  Serious: Yes (Death, Hospitalization, Other)
  Sender: FDA-Public Use
  Company Number: PHHY2015AR071572

PATIENT
  Sex: Male

DRUGS (2)
  1. EXELON PATCH [Suspect]
     Active Substance: RIVASTIGMINE
     Indication: MUSCULOSKELETAL STIFFNESS
  2. EXELON PATCH [Suspect]
     Active Substance: RIVASTIGMINE
     Indication: PARKINSON^S DISEASE
     Dosage: 1 DF, QD
     Route: 062

REACTIONS (11)
  - Tremor [Unknown]
  - Extremity contracture [Unknown]
  - Off label use [Unknown]
  - Dysstasia [Unknown]
  - Multi-organ disorder [Fatal]
  - Muscle rigidity [Unknown]
  - Bronchial disorder [Fatal]
  - Pneumonia [Unknown]
  - Akinesia [Unknown]
  - Aspiration [Unknown]
  - Speech disorder [Unknown]
